FAERS Safety Report 17988010 (Version 2)
Quarter: 2021Q4

REPORT INFORMATION
  Report Type: Spontaneous
  Country: US (occurrence: US)
  Receive Date: 20200707
  Receipt Date: 20211220
  Transmission Date: 20220303
  Serious: Yes (Other)
  Sender: FDA-Public Use
  Company Number: US-COLGATE PALMOLIVE COMPANY-20200701271

PATIENT
  Age: 60 Year
  Sex: Female

DRUGS (2)
  1. COLGATE OPTIC WHITE RENEWAL HIGH IMPACT WHITE [Suspect]
     Active Substance: SODIUM MONOFLUOROPHOSPHATE
     Dosage: BURSHED HER TEETH EVERY TIME SHE EAT
     Dates: start: 2020, end: 2021
  2. COLGATE OPTIC WHITE - SPARKLING MINT [Suspect]
     Active Substance: SODIUM MONOFLUOROPHOSPHATE
     Dosage: UNK
     Dates: start: 2007

REACTIONS (4)
  - Tooth injury [Not Recovered/Not Resolved]
  - Tooth fracture [Unknown]
  - Dental caries [Unknown]
  - Tooth loss [Not Recovered/Not Resolved]
